FAERS Safety Report 5227481-8 (Version None)
Quarter: 2007Q1

REPORT INFORMATION
  Report Type: 
  Country: None (occurrence: None)
  Receive Date: 20061201
  Receipt Date: 20061011
  Transmission Date: 20070707
  Serious: No
  Sender: FDA-Public Use
  Company Number: US200610001920

PATIENT
  Age: 51 Year
  Sex: Female

DRUGS (6)
  1. CYMBALTA [Suspect]
     Indication: FIBROMYALGIA
     Dosage: 30 MG, DAILY (1/D), ORAL
     Route: 048
     Dates: start: 20061009
  2. COUMADIN [Concomitant]
  3. PREVACID [Concomitant]
  4. CALCIUM (CALCIUM) [Concomitant]
  5. MULTIVITAMIN [Concomitant]
  6. FIBERALL (PSYLLIUM HYDROPHILIC MUCILLOID) [Concomitant]

REACTIONS (7)
  - DRY MOUTH [None]
  - FEELING ABNORMAL [None]
  - GASTROOESOPHAGEAL REFLUX DISEASE [None]
  - HEAD DISCOMFORT [None]
  - HYPOAESTHESIA [None]
  - INSOMNIA [None]
  - PARAESTHESIA [None]
